FAERS Safety Report 25210227 (Version 3)
Quarter: 2025Q2

REPORT INFORMATION
  Report Type: Spontaneous
  Country: IT (occurrence: IT)
  Receive Date: 20250417
  Receipt Date: 20250529
  Transmission Date: 20250716
  Serious: Yes (Life-Threatening, Disabling)
  Sender: ORGANON
  Company Number: None

PATIENT
  Age: 26 Year
  Sex: Male
  Weight: 92 kg

DRUGS (1)
  1. PROPECIA [Suspect]
     Active Substance: FINASTERIDE
     Indication: Androgenetic alopecia
     Dosage: PROPECIA FINASTERIDE 1 MG FILM-COATED TABLETS. DOSAGE: 1 MG/DAY
     Route: 048
     Dates: start: 2017, end: 2019

REACTIONS (13)
  - Suicidal ideation [Not Recovered/Not Resolved]
  - Genital hypoaesthesia [Not Recovered/Not Resolved]
  - Libido decreased [Not Recovered/Not Resolved]
  - Penile size reduced [Not Recovered/Not Resolved]
  - Semen volume decreased [Not Recovered/Not Resolved]
  - Male orgasmic disorder [Not Recovered/Not Resolved]
  - Gynaecomastia [Not Recovered/Not Resolved]
  - Depression [Not Recovered/Not Resolved]
  - Anxiety [Not Recovered/Not Resolved]
  - Cognitive disorder [Not Recovered/Not Resolved]
  - Hypotonia [Not Recovered/Not Resolved]
  - Muscle fatigue [Not Recovered/Not Resolved]
  - Insomnia [Not Recovered/Not Resolved]

NARRATIVE: CASE EVENT DATE: 20190501
